FAERS Safety Report 4952934-7 (Version None)
Quarter: 2006Q1

REPORT INFORMATION
  Report Type: 
  Country: None (occurrence: None)
  Receive Date: 20060324
  Receipt Date: 20040607
  Transmission Date: 20060701
  Serious: Yes (Hospitalization, Other)
  Sender: FDA-Public Use
  Company Number: PHEH2004US06334

PATIENT
  Age: 65 Year
  Sex: Male
  Weight: 63.492 kg

DRUGS (13)
  1. ZOMETA [Suspect]
     Indication: MULTIPLE MYELOMA
     Dosage: 4 MG EVERY 4 WEEKS
     Route: 042
     Dates: start: 20020301, end: 20040301
  2. THALIDOMIDE [Concomitant]
     Indication: MULTIPLE MYELOMA
     Dosage: 200 MG, QD
     Dates: start: 20021001
  3. DEXAMETHASONE TAB [Concomitant]
     Indication: MULTIPLE MYELOMA
     Dosage: 40 MG, QD FOR 4 DAYS EVERY MONTH
     Dates: start: 20020301, end: 20020801
  4. DEXAMETHASONE TAB [Concomitant]
     Dosage: 40 MG QD X 4DAYS/MONTH
     Dates: start: 20021001
  5. FENTANYL [Concomitant]
     Indication: PAIN
     Dosage: 75 MCG/HOUR
     Route: 062
     Dates: start: 20020301
  6. LISINOPRIL [Concomitant]
     Indication: HYPERTENSION
     Dosage: 20 MG, QD
     Dates: start: 20000101
  7. ROXICODONE [Concomitant]
     Indication: PAIN
     Dosage: 5-10 MG EVERY 4 HOURS PRN
     Dates: start: 20020301
  8. PROTONIX [Concomitant]
     Indication: GASTROOESOPHAGEAL REFLUX DISEASE
     Dosage: 20 MG, QD
     Dates: start: 20020301
  9. VITAMIN B6 [Concomitant]
     Indication: MULTIPLE MYELOMA
     Dosage: 50 MG, QD
     Dates: start: 20021001
  10. VINCRISTINE [Concomitant]
     Indication: MULTIPLE MYELOMA
     Dosage: 1.4 MG/M2 EVERY 4 WEEKS
     Dates: start: 20020301, end: 20020801
  11. DOXIL [Concomitant]
     Indication: MULTIPLE MYELOMA
     Dosage: 40 MG/M2 EVERY 4 WEEKS
     Dates: start: 20020301, end: 20020801
  12. LOVENOX [Concomitant]
     Dosage: UNK, QD
  13. PAROXETINE HCL [Concomitant]
     Dosage: 50 MG, QD

REACTIONS (21)
  - ANAEMIA [None]
  - ASTHENIA [None]
  - BLOOD ALBUMIN DECREASED [None]
  - BLOOD CALCIUM DECREASED [None]
  - BLOOD GLUCOSE INCREASED [None]
  - BLOOD POTASSIUM DECREASED [None]
  - BONE DISORDER [None]
  - COMPRESSION FRACTURE [None]
  - DEEP VEIN THROMBOSIS [None]
  - FATIGUE [None]
  - HYPERBARIC OXYGEN THERAPY [None]
  - INSOMNIA [None]
  - JAW DISORDER [None]
  - OCULAR HYPERTENSION [None]
  - OSTEOMYELITIS [None]
  - OSTEONECROSIS [None]
  - PAIN [None]
  - PERIODONTAL DISEASE [None]
  - TOOTH LOSS [None]
  - WEIGHT DECREASED [None]
  - WOUND DEBRIDEMENT [None]
